FAERS Safety Report 5287943-4 (Version None)
Quarter: 2007Q2

REPORT INFORMATION
  Report Type: 
  Country: None (occurrence: None)
  Receive Date: 20070405
  Receipt Date: 20070327
  Transmission Date: 20071010
  Serious: Yes (Hospitalization, Disabling)
  Sender: FDA-Public Use
  Company Number: US-JNJFOC-20070306241

PATIENT
  Age: 38 Year
  Sex: Male

DRUGS (15)
  1. PREZISTA [Suspect]
     Indication: HIV INFECTION
     Route: 065
  2. MK0518 [Suspect]
     Indication: HIV INFECTION
     Route: 048
  3. RITONAVIR [Suspect]
     Indication: HIV INFECTION
     Route: 065
  4. TRUVADA [Suspect]
     Indication: HIV INFECTION
     Route: 065
  5. NEVIRAPINE [Suspect]
     Indication: HIV INFECTION
     Route: 065
  6. ACYCLOVIR [Concomitant]
     Route: 065
  7. CLARITHROMYCIN [Concomitant]
     Route: 065
  8. DIVALPROEX SODIUM [Concomitant]
     Route: 065
  9. ENALAPRIL MALEATE [Concomitant]
     Route: 065
  10. FLUCONAZOLE [Concomitant]
     Route: 065
  11. LITHIUM CARBONATE [Concomitant]
     Route: 065
  12. METOCLOPRAMIDE HYDROCHLORIDE [Concomitant]
     Route: 065
  13. MIRTAZAPINE [Concomitant]
     Route: 065
  14. OLANZAPINE [Concomitant]
     Route: 065
  15. PROTRIPTYLINE HCL [Concomitant]
     Route: 065

REACTIONS (2)
  - ANAEMIA [None]
  - FEBRILE NEUTROPENIA [None]
